FAERS Safety Report 13669819 (Version 1)
Quarter: 2017Q2

REPORT INFORMATION
  Report Type: Spontaneous
  Country: US (occurrence: US)
  Receive Date: 20170620
  Receipt Date: 20170620
  Transmission Date: 20170830
  Serious: No
  Sender: FDA-Public Use
  Company Number: US-BRAEBURN PHARMACEUTICALS, INC.-2017BBN00017

PATIENT
  Age: 61 Year
  Sex: Female
  Weight: 70.75 kg

DRUGS (2)
  1. PROBUPHINE [Suspect]
     Active Substance: BUPRENORPHINE HYDROCHLORIDE
     Indication: PAIN MANAGEMENT
     Dosage: 5 DOSAGE UNITS, UNK
     Route: 059
     Dates: start: 20160613
  2. SMARTY PANTS VITAMINS [Concomitant]

REACTIONS (16)
  - Suicidal ideation [Recovered/Resolved]
  - Crying [Recovered/Resolved]
  - Abdominal pain upper [Recovered/Resolved]
  - Incorrect drug administration duration [Not Recovered/Not Resolved]
  - Insomnia [Recovered/Resolved]
  - Drug use disorder [Recovering/Resolving]
  - Irritability [Recovered/Resolved]
  - Hypoaesthesia [Recovering/Resolving]
  - Diarrhoea [Recovered/Resolved]
  - Limb discomfort [Recovering/Resolving]
  - Abnormal dreams [Recovering/Resolving]
  - Thinking abnormal [Recovered/Resolved]
  - Rhinorrhoea [Recovering/Resolving]
  - Drug withdrawal syndrome [Recovered/Resolved]
  - Hyperhidrosis [Unknown]
  - Nausea [Recovered/Resolved]

NARRATIVE: CASE EVENT DATE: 20161213
